FAERS Safety Report 25821045 (Version 1)
Quarter: 2025Q3

REPORT INFORMATION
  Report Type: Spontaneous
  Country: US (occurrence: US)
  Receive Date: 20250919
  Receipt Date: 20250919
  Transmission Date: 20251021
  Serious: Yes (Other)
  Sender: Otter
  Company Number: US-OTTER-US-2025AST000444

PATIENT
  Age: 20 Year
  Sex: Female

DRUGS (1)
  1. METHOTREXATE [Suspect]
     Active Substance: METHOTREXATE
     Indication: Acute lymphocytic leukaemia
     Route: 037

REACTIONS (2)
  - Toxic leukoencephalopathy [Recovering/Resolving]
  - Off label use [Unknown]
